FAERS Safety Report 24813689 (Version 2)
Quarter: 2025Q1

REPORT INFORMATION
  Report Type: Spontaneous
  Country: US (occurrence: US)
  Receive Date: 20250107
  Receipt Date: 20250118
  Transmission Date: 20250409
  Serious: Yes (Death, Hospitalization)
  Sender: TEVA
  Company Number: US-TEVA-VS-3283320

PATIENT
  Age: 56 Year
  Sex: Female

DRUGS (1)
  1. ISONIAZID [Suspect]
     Active Substance: ISONIAZID
     Indication: Latent tuberculosis
     Route: 065

REACTIONS (4)
  - Hepatitis fulminant [Fatal]
  - Mental status changes [Fatal]
  - Hyperammonaemia [Fatal]
  - Renal impairment [Fatal]
